FAERS Safety Report 5761616-3 (Version None)
Quarter: 2008Q2

REPORT INFORMATION
  Report Type: 
  Country: None (occurrence: None)
  Receive Date: 20080606
  Receipt Date: 20080528
  Transmission Date: 20081010
  Serious: Yes (Hospitalization, Other)
  Sender: FDA-Public Use
  Company Number: US-PFIZER INC-2008027306

PATIENT
  Sex: Female
  Weight: 61.7 kg

DRUGS (8)
  1. REVATIO [Suspect]
     Indication: DYSPNOEA
     Dates: start: 20080201, end: 20080316
  2. HYDREA [Concomitant]
  3. WARFARIN SODIUM [Concomitant]
  4. ALBUTEROL [Concomitant]
  5. SYMBICORT [Concomitant]
     Route: 055
  6. SPIRIVA [Concomitant]
  7. NITROGLYCERIN [Concomitant]
  8. LIDODERM [Concomitant]
     Route: 062

REACTIONS (9)
  - ASTHENIA [None]
  - BLOOD PRESSURE DECREASED [None]
  - DYSPNOEA [None]
  - FATIGUE [None]
  - GAIT DISTURBANCE [None]
  - HYPERTENSION [None]
  - NAUSEA [None]
  - ULCER [None]
  - VOMITING [None]
